FAERS Safety Report 4562970-0 (Version None)
Quarter: 2005Q1

REPORT INFORMATION
  Report Type: 
  Country: None (occurrence: None)
  Receive Date: 20050121
  Receipt Date: 20050111
  Transmission Date: 20050727
  Serious: Yes (Other)
  Sender: FDA-Public Use
  Company Number: 2005011903

PATIENT
  Age: 43 Year
  Sex: Female

DRUGS (3)
  1. DOXYCYCLINE [Suspect]
     Indication: LYME DISEASE
     Dosage: 200 MG (100 MG, 2 IN 1 D), ORAL
     Route: 048
     Dates: start: 20041009, end: 20041030
  2. ACETAMINOPHEN [Concomitant]
  3. ALL OTHER THERAPEUTIC PRODUCTS (ALL [Concomitant]

REACTIONS (4)
  - CHROMATURIA [None]
  - FATIGUE [None]
  - PHOTOSENSITIVITY REACTION [None]
  - STOMACH DISCOMFORT [None]
